FAERS Safety Report 7530615-3 (Version None)
Quarter: 2011Q2

REPORT INFORMATION
  Report Type: 
  Country: None (occurrence: None)
  Receive Date: 20110607
  Receipt Date: 20110524
  Transmission Date: 20111010
  Serious: Yes (Other)
  Sender: FDA-Public Use
  Company Number: CA-JNJFOC-20110511893

PATIENT
  Sex: Female
  Weight: 31 kg

DRUGS (4)
  1. REMICADE [Suspect]
     Indication: SARCOIDOSIS
     Route: 042
     Dates: end: 20110101
  2. REMICADE [Suspect]
     Route: 042
     Dates: start: 20070101
  3. PREDNISONE [Concomitant]
  4. TYLENOL-500 [Concomitant]
     Route: 048

REACTIONS (8)
  - SARCOIDOSIS [None]
  - PYREXIA [None]
  - EYE SWELLING [None]
  - HYPERHIDROSIS [None]
  - PAIN [None]
  - EYE INFLAMMATION [None]
  - SWELLING [None]
  - ARTHRITIS [None]
